FAERS Safety Report 14138671 (Version 1)
Quarter: 2017Q4

REPORT INFORMATION
  Report Type: Spontaneous
  Country: IT (occurrence: IT)
  Receive Date: 20171027
  Receipt Date: 20171027
  Transmission Date: 20180321
  Serious: Yes (Other)
  Sender: FDA-Public Use
  Company Number: IT-FERRINGPH-2017FE05244

PATIENT

DRUGS (4)
  1. SOMATROPIN. [Suspect]
     Active Substance: SOMATROPIN
     Indication: GROWTH HORMONE DEFICIENCY
     Dosage: 0.24 MG/KG, WEEKLY
     Route: 065
  2. LEVOTHYROXINE. [Concomitant]
     Active Substance: LEVOTHYROXINE
     Indication: CONGENITAL HYPOTHYROIDISM
     Dosage: 8 ?G/KG, DAILY
     Route: 065
  3. LEVOTHYROXINE. [Concomitant]
     Active Substance: LEVOTHYROXINE
     Dosage: 125 ?G, DAILY
     Route: 065
  4. ESTRADIOL. [Concomitant]
     Active Substance: ESTRADIOL
     Indication: HYPOGONADISM
     Route: 065

REACTIONS (7)
  - Condition aggravated [Unknown]
  - Ovarian cyst [Unknown]
  - Obesity [Recovering/Resolving]
  - Sleep apnoea syndrome [Not Recovered/Not Resolved]
  - Psychotic disorder [Unknown]
  - Scoliosis [Unknown]
  - Dermatillomania [Not Recovered/Not Resolved]
